FAERS Safety Report 13480622 (Version 2)
Quarter: 2017Q2

REPORT INFORMATION
  Report Type: Report from Study
  Country: ES (occurrence: ES)
  Receive Date: 20170425
  Receipt Date: 20170428
  Transmission Date: 20170830
  Serious: Yes (Other)
  Sender: FDA-Public Use
  Company Number: ES-JNJFOC-20170420545

PATIENT
  Age: 61 Year
  Sex: Female

DRUGS (3)
  1. INFLIXIMAB, RECOMBINANT [Suspect]
     Active Substance: INFLIXIMAB
     Indication: ERYTHRODERMIC PSORIASIS
     Route: 042
  2. INFLIXIMAB, RECOMBINANT [Suspect]
     Active Substance: INFLIXIMAB
     Indication: ERYTHRODERMIC PSORIASIS
     Dosage: 0,2 AND 6 WEEKS AND THEN 8 WEEKS
     Route: 042
  3. CICLOSPORIN A [Suspect]
     Active Substance: CYCLOSPORINE
     Indication: ERYTHRODERMIC PSORIASIS
     Dosage: TOTAL DAILY DOSE: 250 MG
     Route: 065

REACTIONS (4)
  - Drug ineffective [Unknown]
  - Upper respiratory tract infection [Unknown]
  - Paronychia [Unknown]
  - Intraductal proliferative breast lesion [Unknown]
